FAERS Safety Report 17103300 (Version 1)
Quarter: 2019Q4

REPORT INFORMATION
  Report Type: Spontaneous
  Country: US (occurrence: US)
  Receive Date: 20191202
  Receipt Date: 20191202
  Transmission Date: 20200122
  Serious: Yes (Other)
  Sender: FDA-Public Use
  Company Number: None

PATIENT
  Age: 53 Year
  Sex: Female
  Weight: 54 kg

DRUGS (2)
  1. TOPROL XL [Concomitant]
     Active Substance: METOPROLOL SUCCINATE
  2. METOPROLOL SUCC (TOPROL) ER TAB 50MG [Suspect]
     Active Substance: METOPROLOL SUCCINATE
     Indication: SINUS TACHYCARDIA
     Dosage: ?          QUANTITY:1 TABLET(S);?
     Route: 048
     Dates: start: 20191005, end: 20191123

REACTIONS (4)
  - Symptom recurrence [None]
  - Tachycardia [None]
  - Product quality issue [None]
  - Manufacturing materials issue [None]

NARRATIVE: CASE EVENT DATE: 20191008
